FAERS Safety Report 10358607 (Version 2)
Quarter: 2015Q3

REPORT INFORMATION
  Report Type: Spontaneous
  Country: US (occurrence: US)
  Receive Date: 20140803
  Receipt Date: 20150820
  Transmission Date: 20151125
  Serious: Yes (Hospitalization, Other)
  Sender: FDA-Public Use
  Company Number: US-ELI_LILLY_AND_COMPANY-US201407008583

PATIENT
  Sex: Male

DRUGS (4)
  1. HUMULIN N [Suspect]
     Active Substance: INSULIN HUMAN
     Dosage: 40 U, QD
     Route: 065
  2. HUMALOG [Suspect]
     Active Substance: INSULIN LISPRO
     Indication: TYPE 1 DIABETES MELLITUS
     Dosage: 10 U, QD
     Route: 065
     Dates: start: 2004
  3. HUMULIN N [Suspect]
     Active Substance: INSULIN HUMAN
     Indication: TYPE 1 DIABETES MELLITUS
     Dosage: 30 U, UNKNOWN
     Route: 065
     Dates: start: 2004
  4. HUMULIN R [Concomitant]
     Active Substance: INSULIN HUMAN

REACTIONS (9)
  - Hypoglycaemia [Unknown]
  - Drug dose omission [Recovered/Resolved]
  - Diabetic ketoacidosis [Unknown]
  - Malaise [Unknown]
  - Drug ineffective [Unknown]
  - Sleep disorder [Unknown]
  - Medication error [Unknown]
  - Blood glucose increased [Unknown]
  - Blood glucose decreased [Unknown]
